FAERS Safety Report 9685652 (Version 1)
Quarter: 2013Q4

REPORT INFORMATION
  Report Type: Spontaneous
  Country: US (occurrence: US)
  Receive Date: 20131113
  Receipt Date: 20131113
  Transmission Date: 20140711
  Serious: No
  Sender: FDA-Public Use
  Company Number: US-009507513-1311USA004205

PATIENT
  Sex: Female

DRUGS (1)
  1. IMPLANON [Suspect]
     Dosage: 3 YEAR IMPLANT, IMPLANT IN ARM-UNKNOWN WHICH ARM
     Route: 059
     Dates: start: 20110810

REACTIONS (1)
  - Metrorrhagia [Unknown]
